FAERS Safety Report 8359139-0 (Version None)
Quarter: 2012Q2

REPORT INFORMATION
  Report Type: 
  Country: None (occurrence: None)
  Receive Date: 20120511
  Receipt Date: 20120503
  Transmission Date: 20120825
  Serious: Yes (Life-Threatening)
  Sender: FDA-Public Use
  Company Number: FK201200623

PATIENT
  Age: 92 Year
  Sex: Female

DRUGS (5)
  1. BISOPROLOL FUMARATE [Concomitant]
  2. HALOPERIDOL [Suspect]
     Indication: AGITATION
     Dosage: 0.6 MG, DAILY, UNKNOWN
  3. AMATADINE (AMANTADINE) [Concomitant]
  4. LEVODOPA (LEVODOPA) [Concomitant]
  5. BENSERAZIDE (BENSERASIDE) [Concomitant]

REACTIONS (4)
  - CARDIAC ARREST [None]
  - ELECTROCARDIOGRAM QT PROLONGED [None]
  - TORSADE DE POINTES [None]
  - ATRIOVENTRICULAR BLOCK COMPLETE [None]
